FAERS Safety Report 12457645 (Version 9)
Quarter: 2017Q3

REPORT INFORMATION
  Report Type: Spontaneous
  Country: FR (occurrence: FR)
  Receive Date: 20160610
  Receipt Date: 20170721
  Transmission Date: 20171127
  Serious: Yes (Death, Life-Threatening, Hospitalization, Other)
  Sender: FDA-Public Use
  Company Number: FR-GILEAD-2016-0217009

PATIENT
  Age: 47 Year
  Sex: Male
  Weight: 71 kg

DRUGS (10)
  1. HARVONI [Suspect]
     Active Substance: LEDIPASVIR\SOFOSBUVIR
     Indication: HEPATITIS C
     Dosage: 1 UNK, UNK
     Route: 048
     Dates: start: 20141215, end: 20150309
  2. ZOLPIDEM [Concomitant]
     Active Substance: ZOLPIDEM\ZOLPIDEM TARTRATE
  3. CANNABIS [Concomitant]
     Active Substance: CANNABIS SATIVA SUBSP. INDICA TOP
  4. CLONAZEPAM. [Concomitant]
     Active Substance: CLONAZEPAM
  5. TRAMADOL + ACETAMINOFEN [Concomitant]
     Active Substance: ACETAMINOPHEN\TRAMADOL
  6. ZOPICLONE [Concomitant]
     Active Substance: ZOPICLONE
  7. LERCANIDIPINE [Concomitant]
     Active Substance: LERCANIDIPINE
  8. AMITRIPTYLINE [Concomitant]
     Active Substance: AMITRIPTYLINE
  9. TRIMEBUTINE [Concomitant]
     Active Substance: TRIMEBUTINE
  10. ALPRAZOLAM. [Concomitant]
     Active Substance: ALPRAZOLAM

REACTIONS (10)
  - Intestinal infarction [Fatal]
  - Altered state of consciousness [Unknown]
  - Tension [Unknown]
  - Leukostasis syndrome [Unknown]
  - Polyneuropathy [Unknown]
  - Abdominal pain [Fatal]
  - Cyanosis [Unknown]
  - Cardio-respiratory arrest [Unknown]
  - Abdominal pain upper [Unknown]
  - Insomnia [Recovering/Resolving]

NARRATIVE: CASE EVENT DATE: 201504
